FAERS Safety Report 10753791 (Version 3)
Quarter: 2017Q4

REPORT INFORMATION
  Report Type: Report from Study
  Country: BR (occurrence: BR)
  Receive Date: 20150201
  Receipt Date: 20171107
  Transmission Date: 20180320
  Serious: Yes (Hospitalization, Other)
  Sender: FDA-Public Use
  Company Number: BR-ROCHE-1088056

PATIENT
  Age: 58 Year
  Sex: Female
  Weight: 86 kg

DRUGS (18)
  1. GLIMEPIRIDE. [Concomitant]
     Active Substance: GLIMEPIRIDE
     Route: 048
  2. ACTEMRA [Suspect]
     Active Substance: TOCILIZUMAB
     Route: 042
     Dates: start: 20170926
  3. MIRTAX [Concomitant]
  4. SYNTHROID [Concomitant]
     Active Substance: LEVOTHYROXINE SODIUM
     Dosage: ONE TABLET IN FASTING
     Route: 048
  5. METHOTREXATE. [Concomitant]
     Active Substance: METHOTREXATE
     Indication: RHEUMATOID ARTHRITIS
     Route: 065
  6. METFORMIN [Concomitant]
     Active Substance: METFORMIN HYDROCHLORIDE
  7. ENDOFOLIN [Concomitant]
     Active Substance: FOLIC ACID
     Route: 048
  8. PURAN [Concomitant]
     Active Substance: LEVOTHYROXINE SODIUM
  9. MIRTAX [Concomitant]
     Route: 048
  10. CELEBRA [Concomitant]
     Active Substance: CELECOXIB
     Indication: PAIN
     Route: 048
  11. JANUVIA [Concomitant]
     Active Substance: SITAGLIPTIN PHOSPHATE
  12. TECNOMET [Concomitant]
     Active Substance: METHOTREXATE
  13. ACLASTA [Concomitant]
     Active Substance: ZOLEDRONIC ACID
     Indication: OSTEOPOROSIS
     Route: 065
  14. ACTEMRA [Suspect]
     Active Substance: TOCILIZUMAB
     Indication: RHEUMATOID ARTHRITIS
     Route: 042
     Dates: start: 20120130
  15. SIMVASTATIN. [Concomitant]
     Active Substance: SIMVASTATIN
  16. GLIFAGE XR [Concomitant]
     Active Substance: METFORMIN HYDROCHLORIDE
     Route: 048
  17. DEPURA [Concomitant]
     Active Substance: CHOLECALCIFEROL
     Route: 065
  18. AMARYL [Concomitant]
     Active Substance: GLIMEPIRIDE

REACTIONS (16)
  - Weight decreased [Recovered/Resolved]
  - Pruritus [Unknown]
  - Cerebrovascular accident [Unknown]
  - Wound [Unknown]
  - Weight increased [Unknown]
  - Nausea [Unknown]
  - Vertigo [Unknown]
  - Immunodeficiency [Unknown]
  - Diabetes mellitus [Not Recovered/Not Resolved]
  - Loss of consciousness [Unknown]
  - Hunger [Unknown]
  - Urinary tract infection bacterial [Unknown]
  - Drug hypersensitivity [Not Recovered/Not Resolved]
  - Cystitis [Recovered/Resolved]
  - Sluggishness [Recovered/Resolved]
  - Syncope [Unknown]

NARRATIVE: CASE EVENT DATE: 201508
